FAERS Safety Report 8721195 (Version 2)
Quarter: 2012Q4

REPORT INFORMATION
  Report Type: 
  Country: US (occurrence: US)
  Receive Date: 20120813
  Receipt Date: 20121107
  Transmission Date: 20130627
  Serious: No
  Sender: FDA-Public Use
  Company Number: US-FRI-1000031530

PATIENT
  Sex: Male

DRUGS (10)
  1. DALIRESP [Suspect]
     Indication: CHRONIC OBSTRUCTIVE PULMONARY DISEASE
     Dosage: 500 mcg
     Route: 048
     Dates: start: 20120305, end: 20120606
  2. DALIRESP [Suspect]
     Indication: UPPER RESPIRATORY TRACT INFECTION
  3. VENTOLIN [Concomitant]
  4. SYMBICORT [Concomitant]
  5. ATORVASTATIN [Concomitant]
  6. DONEPEZIL [Concomitant]
  7. NEXIUM [Concomitant]
  8. SOTALOL [Concomitant]
  9. UROXATRAL [Concomitant]
  10. LASIX [Concomitant]

REACTIONS (1)
  - Mania [Recovered/Resolved]
